FAERS Safety Report 20960622 (Version 3)
Quarter: 2022Q4

REPORT INFORMATION
  Report Type: Report from Study
  Country: CA (occurrence: None)
  Receive Date: 20220615
  Receipt Date: 20221109
  Transmission Date: 20230113
  Serious: Yes (Hospitalization, Other)
  Sender: FDA-Public Use
  Company Number: CA-ROCHE-3048278

PATIENT
  Age: 67 Year
  Sex: Female
  Weight: 74.3 kg

DRUGS (10)
  1. BEVACIZUMAB [Suspect]
     Active Substance: BEVACIZUMAB
     Indication: Ovarian cancer
     Route: 042
     Dates: start: 20220127
  2. BEVACIZUMAB [Suspect]
     Active Substance: BEVACIZUMAB
     Route: 042
     Dates: start: 20210909
  3. BEVACIZUMAB [Suspect]
     Active Substance: BEVACIZUMAB
     Route: 042
     Dates: start: 20211104
  4. BEVACIZUMAB [Suspect]
     Active Substance: BEVACIZUMAB
     Route: 042
     Dates: start: 20220113
  5. BEVACIZUMAB [Suspect]
     Active Substance: BEVACIZUMAB
     Dosage: CYCLE=28DAYS BEVACIZUMAB:10MG/KG IV ON DAYS1AND15
     Route: 042
     Dates: start: 20220113, end: 20220127
  6. BEVACIZUMAB [Suspect]
     Active Substance: BEVACIZUMAB
     Route: 042
     Dates: start: 20190815
  7. BEVACIZUMAB [Suspect]
     Active Substance: BEVACIZUMAB
     Route: 042
     Dates: start: 20200206
  8. BEVACIZUMAB [Suspect]
     Active Substance: BEVACIZUMAB
     Route: 042
     Dates: start: 20200305
  9. ANETUMAB RAVTANSINE [Suspect]
     Active Substance: ANETUMAB RAVTANSINE
     Indication: Ovarian cancer
     Route: 065
     Dates: start: 20220127
  10. ANETUMAB RAVTANSINE [Suspect]
     Active Substance: ANETUMAB RAVTANSINE
     Dosage: CYCLE=28DAYS ANETUMAB RAVTANSINE:2.2MG/KG IV ON DAYS1,8,15,AND 22
     Route: 042
     Dates: start: 20220113, end: 20220127

REACTIONS (17)
  - Small intestinal obstruction [Not Recovered/Not Resolved]
  - Anaemia [Unknown]
  - Vomiting [Unknown]
  - Hypoalbuminaemia [Unknown]
  - Anaemia [Unknown]
  - Hypocalcaemia [Unknown]
  - Lymphocyte count decreased [Unknown]
  - Lymphocyte count decreased [Unknown]
  - Neutrophil count decreased [Unknown]
  - Neutrophil count decreased [Unknown]
  - White blood cell count decreased [Unknown]
  - White blood cell count decreased [Unknown]
  - Platelet count decreased [Unknown]
  - Platelet count decreased [Unknown]
  - Neutrophil count decreased [Unknown]
  - Neutrophil count decreased [Unknown]
  - Peripheral sensory neuropathy [Unknown]

NARRATIVE: CASE EVENT DATE: 20190918
